FAERS Safety Report 26042053 (Version 1)
Quarter: 2025Q4

REPORT INFORMATION
  Report Type: Spontaneous
  Country: QA (occurrence: QA)
  Receive Date: 20251113
  Receipt Date: 20251113
  Transmission Date: 20260117
  Serious: Yes (Hospitalization, Other)
  Sender: PURDUE
  Company Number: QA-NAPPMUNDI-GBR-2025-0130335

PATIENT

DRUGS (4)
  1. MORPHINE SULFATE [Suspect]
     Active Substance: MORPHINE SULFATE
     Indication: Pain management
     Dosage: STD DOSE RANGED FROM 100-150 MCG/KG OVER 1 HOUR, FOLLOWED BY CONTINUOUS INFUSION OF 10-20 MCG/KG/HOU
     Route: 042
  2. MORPHINE SULFATE [Suspect]
     Active Substance: MORPHINE SULFATE
     Indication: Sedation
  3. MORPHINE SULFATE [Suspect]
     Active Substance: MORPHINE SULFATE
     Indication: Pain management
     Dosage: STD DOSE RANGED FROM 100-150 MCG/KG OVER 1 HOUR, FOLLOWED BY CONTINUOUS INFUSION OF 10-20 MCG/KG/HOU
     Route: 042
  4. MORPHINE SULFATE [Suspect]
     Active Substance: MORPHINE SULFATE
     Indication: Sedation

REACTIONS (1)
  - Drug-induced liver injury [Unknown]
